FAERS Safety Report 25905691 (Version 1)
Quarter: 2025Q4

REPORT INFORMATION
  Report Type: Other
  Country: EU (occurrence: EU)
  Receive Date: 20251010
  Receipt Date: 20251010
  Transmission Date: 20260118
  Serious: Yes (Hospitalization, Other)
  Sender: STRIDES
  Company Number: EU-ZENTIVA-2025-ZT-048310

PATIENT
  Age: 65 Year
  Sex: Male

DRUGS (2)
  1. IBUPROFEN [Suspect]
     Active Substance: IBUPROFEN
     Indication: Back pain
     Dosage: 2 DOSAGE FORM, 1 TOTAL
     Route: 065
  2. IBUPROFEN [Suspect]
     Active Substance: IBUPROFEN
     Dosage: 2 DOSAGE FORM, CAPSULE
     Route: 065

REACTIONS (4)
  - Hyperkalaemia [Unknown]
  - Oliguria [Unknown]
  - Prescription drug used without a prescription [Unknown]
  - Acute kidney injury [Unknown]
